FAERS Safety Report 6050260-9 (Version None)
Quarter: 2009Q1

REPORT INFORMATION
  Report Type: 
  Country: None (occurrence: None)
  Receive Date: 20090126
  Receipt Date: 20090116
  Transmission Date: 20090719
  Serious: Yes (Hospitalization, Other)
  Sender: FDA-Public Use
  Company Number: US-AMGEN-QUU321790

PATIENT
  Sex: Female
  Weight: 77.2 kg

DRUGS (5)
  1. ENBREL [Suspect]
     Indication: RHEUMATOID ARTHRITIS
     Route: 058
     Dates: start: 19990901
  2. METHOTREXATE [Concomitant]
     Route: 048
  3. FOLIC ACID [Concomitant]
  4. PREDNISONE [Concomitant]
  5. ELAVIL [Concomitant]

REACTIONS (23)
  - ABDOMINAL PAIN [None]
  - ARTHRITIS [None]
  - BALANCE DISORDER [None]
  - DENTAL DISCOMFORT [None]
  - DEPRESSION [None]
  - DYSGEUSIA [None]
  - FALL [None]
  - FATIGUE [None]
  - GALLBLADDER DISORDER [None]
  - INJECTION SITE PAIN [None]
  - INSOMNIA [None]
  - JOINT SWELLING [None]
  - LIMB DISCOMFORT [None]
  - MEMORY IMPAIRMENT [None]
  - MUSCULOSKELETAL STIFFNESS [None]
  - POST PROCEDURAL INFECTION [None]
  - RHEUMATOID ARTHRITIS [None]
  - STOMATITIS [None]
  - TONGUE COATED [None]
  - TOOTH INFECTION [None]
  - VOMITING [None]
  - WEIGHT INCREASED [None]
  - WRIST FRACTURE [None]
